FAERS Safety Report 11819246 (Version 1)
Quarter: 2015Q4

REPORT INFORMATION
  Report Type: Spontaneous
  Country: US (occurrence: None)
  Receive Date: 20151209
  Receipt Date: 20151209
  Transmission Date: 20160305
  Serious: Yes (Hospitalization)
  Sender: FDA-Public Use
  Company Number: None

PATIENT
  Age: 76 Year
  Sex: Female
  Weight: 86.9 kg

DRUGS (16)
  1. CITRACAL +D [Concomitant]
  2. CYMBALTA [Concomitant]
     Active Substance: DULOXETINE HYDROCHLORIDE
  3. ELIQUIS [Concomitant]
     Active Substance: APIXABAN
  4. LASIX [Concomitant]
     Active Substance: FUROSEMIDE
  5. PREDNISONE. [Concomitant]
     Active Substance: PREDNISONE
  6. SENNA [Concomitant]
     Active Substance: SENNA LEAF\SENNOSIDES\SENNOSIDES A AND B
  7. TORPOL XL [Concomitant]
  8. KLOR-CON [Concomitant]
     Active Substance: POTASSIUM CHLORIDE
  9. FENTANYL. [Suspect]
     Active Substance: FENTANYL
     Indication: PAIN
     Dosage: 50MCG Q3DAYS TOP?CHRONIC
     Route: 061
  10. PEPCID [Concomitant]
     Active Substance: FAMOTIDINE
  11. XANAX [Suspect]
     Active Substance: ALPRAZOLAM
  12. NOVOLOG [Concomitant]
     Active Substance: INSULIN ASPART
  13. ALBUTE [Concomitant]
  14. NORCO [Suspect]
     Active Substance: ACETAMINOPHEN\HYDROCODONE BITARTRATE
     Indication: PAIN
     Dosage: 5/325MG Q4HR PRN PO?CHRONIC
     Route: 048
  15. LANTUS [Concomitant]
     Active Substance: INSULIN GLARGINE
  16. AMIODARONE [Concomitant]
     Active Substance: AMIODARONE

REACTIONS (2)
  - Sedation [None]
  - Respiratory rate decreased [None]

NARRATIVE: CASE EVENT DATE: 20150130
